FAERS Safety Report 9967919 (Version 1)
Quarter: 2014Q1

REPORT INFORMATION
  Report Type: Report from Study
  Country: US (occurrence: US)
  Receive Date: 20140306
  Receipt Date: 20140306
  Transmission Date: 20141002
  Serious: No
  Sender: FDA-Public Use
  Company Number: US-ABBVIE-13P-163-1139952-00

PATIENT
  Age: 55 Year
  Sex: Female

DRUGS (12)
  1. HUMIRA [Suspect]
     Indication: RHEUMATOID ARTHRITIS
     Dates: start: 20130701
  2. METHOTREXATE [Concomitant]
     Indication: PRODUCT USED FOR UNKNOWN INDICATION
     Dosage: 6 TABLETS EVERY WEDNESDAY
  3. SINGULAIR [Concomitant]
     Indication: ASTHMA
     Dosage: AT NIGHT
  4. METFORMIN [Concomitant]
     Indication: DIABETES MELLITUS
  5. OMEPRAZOLE [Concomitant]
     Indication: DYSPEPSIA
  6. GLIMEPIRIDE [Concomitant]
     Indication: DIABETES MELLITUS
  7. XANAX [Concomitant]
     Indication: PRODUCT USED FOR UNKNOWN INDICATION
  8. ABILIFY [Concomitant]
     Indication: ANXIETY
     Dosage: AT NIGHT
  9. ABILIFY [Concomitant]
     Indication: DEPRESSION
  10. FOLIC ACID [Concomitant]
     Indication: PRODUCT USED FOR UNKNOWN INDICATION
     Dosage: EVERY DAY EXCEPT WEDNESDAY
  11. OVER-THE-COUNTER PROBIOTIC CAPSULES [Concomitant]
     Indication: PROBIOTIC THERAPY
  12. PREDNISONE [Concomitant]
     Indication: STEROID THERAPY
     Dosage: 1 MG DAILY

REACTIONS (2)
  - Fatigue [Recovering/Resolving]
  - Drug effect incomplete [Recovering/Resolving]
